FAERS Safety Report 13276571 (Version 1)
Quarter: 2017Q1

REPORT INFORMATION
  Report Type: Spontaneous
  Country: GB (occurrence: GB)
  Receive Date: 20170228
  Receipt Date: 20170228
  Transmission Date: 20170428
  Serious: Yes (Other)
  Sender: FDA-Public Use
  Company Number: GB-TEVA-742239ACC

PATIENT
  Age: 80 Year
  Sex: Female

DRUGS (2)
  1. PYRIDOSTIGMINE BROMIDE (MEDA PHARMA) [Suspect]
     Active Substance: PYRIDOSTIGMINE BROMIDE
     Route: 065
  2. PREDNISOLONE. [Suspect]
     Active Substance: PREDNISOLONE
     Indication: MYASTHENIA GRAVIS
     Dosage: 15 MILLIGRAM DAILY;
     Route: 065

REACTIONS (5)
  - Pelvic pain [Unknown]
  - Fracture [Unknown]
  - Back pain [Unknown]
  - Arthralgia [Unknown]
  - Neuralgia [Unknown]
